FAERS Safety Report 15340577 (Version 6)
Quarter: 2019Q4

REPORT INFORMATION
  Report Type: Report from Study
  Country: US (occurrence: US)
  Receive Date: 20180831
  Receipt Date: 20191002
  Transmission Date: 20200122
  Serious: Yes (Death, Hospitalization, Disabling)
  Sender: FDA-Public Use
  Company Number: US-ACTELION-A-NJ2018-176105

PATIENT
  Age: 64 Year
  Sex: Female

DRUGS (7)
  1. LASIX [Concomitant]
     Active Substance: FUROSEMIDE
     Dosage: 20 MG, PRN
     Dates: end: 20190720
  2. PREDNISONE. [Concomitant]
     Active Substance: PREDNISONE
     Dosage: 5 MG, QD
     Dates: end: 20190720
  3. LEXAPRO [Concomitant]
     Active Substance: ESCITALOPRAM OXALATE
     Dosage: 20 MG, QD
     Dates: end: 20190720
  4. GABAPENTIN. [Concomitant]
     Active Substance: GABAPENTIN
     Dosage: 300 MG, TID
     Dates: end: 20190720
  5. METOPROLOL TARTRATE. [Concomitant]
     Active Substance: METOPROLOL TARTRATE
     Dosage: 25 MG, BID
     Dates: end: 20190720
  6. OPSUMIT [Suspect]
     Active Substance: MACITENTAN
     Indication: PULMONARY ARTERIAL HYPERTENSION
     Dosage: 10 MG, QD
     Route: 048
     Dates: start: 20140424
  7. PROAIR HFA [Concomitant]
     Active Substance: ALBUTEROL SULFATE
     Dosage: 2 UNK, QPM
     Dates: end: 20190720

REACTIONS (11)
  - Condition aggravated [Unknown]
  - Intestinal obstruction [Not Recovered/Not Resolved]
  - Arthralgia [Recovering/Resolving]
  - Pulmonary arterial hypertension [Unknown]
  - Hospice care [Unknown]
  - Disease progression [Unknown]
  - Interstitial lung disease [Fatal]
  - Bronchitis [Recovered/Resolved]
  - Respiratory failure [Unknown]
  - Dyspnoea [Unknown]
  - Terminal state [Unknown]

NARRATIVE: CASE EVENT DATE: 201807
